FAERS Safety Report 4483792-5 (Version None)
Quarter: 2004Q4

REPORT INFORMATION
  Report Type: 
  Country: None (occurrence: None)
  Receive Date: 20041025
  Receipt Date: 20041013
  Transmission Date: 20050328
  Serious: Yes (Death, Other)
  Sender: FDA-Public Use
  Company Number: US-BRISTOL-MYERS SQUIBB COMPANY-12731493

PATIENT
  Age: 52 Year
  Sex: Female
  Weight: 77 kg

DRUGS (9)
  1. SERZONE [Suspect]
     Dates: start: 20000322, end: 20010621
  2. ESTRADIOL [Concomitant]
  3. SOMA [Concomitant]
  4. OXYCONTIN [Concomitant]
  5. HYDROCHLOROTHIAZIDE [Concomitant]
  6. PREDNISONE [Concomitant]
  7. DARVOCET [Concomitant]
  8. AMBIEN [Concomitant]
  9. ZOCOR [Concomitant]

REACTIONS (4)
  - GAMMA-GLUTAMYLTRANSFERASE INCREASED [None]
  - HEPATIC HAEMORRHAGE [None]
  - HEPATIC STEATOSIS [None]
  - HEPATITIS ALCOHOLIC [None]
